FAERS Safety Report 9455943 (Version 3)
Quarter: 2013Q3

REPORT INFORMATION
  Report Type: Spontaneous
  Country: US (occurrence: US)
  Receive Date: 20130813
  Receipt Date: 20130829
  Transmission Date: 20140515
  Serious: Yes (Hospitalization)
  Sender: FDA-Public Use
  Company Number: US-GILEAD-2013-0081154

PATIENT
  Age: 74 Year
  Sex: Female

DRUGS (4)
  1. LETAIRIS [Suspect]
     Indication: PULMONARY ARTERIAL HYPERTENSION
     Dosage: 5 MG, QD
     Dates: start: 20090925
  2. LETAIRIS [Suspect]
     Indication: HYPOVENTILATION
  3. LETAIRIS [Suspect]
     Indication: PULMONARY EMBOLISM
  4. REVATIO [Concomitant]

REACTIONS (4)
  - Syncope [Unknown]
  - Carotid artery disease [Unknown]
  - Dizziness [Unknown]
  - Dyspnoea [Unknown]
